FAERS Safety Report 6039401-7 (Version None)
Quarter: 2009Q1

REPORT INFORMATION
  Report Type: 
  Country: None (occurrence: None)
  Receive Date: 20090115
  Receipt Date: 20090107
  Transmission Date: 20090719
  Serious: Yes (Hospitalization)
  Sender: FDA-Public Use
  Company Number: GB-MERCK-0901GBR00017

PATIENT
  Age: 43 Year
  Sex: Male

DRUGS (1)
  1. COZAAR [Suspect]
     Route: 048

REACTIONS (3)
  - ABDOMINAL PAIN [None]
  - BLOOD CREATININE INCREASED [None]
  - NEPHROTIC SYNDROME [None]
